FAERS Safety Report 8898622 (Version 1)
Quarter: 2012Q4

REPORT INFORMATION
  Report Type: 
  Country: US (occurrence: US)
  Receive Date: 20121108
  Receipt Date: 20121108
  Transmission Date: 20130627
  Serious: No
  Sender: FDA-Public Use
  Company Number: US-AMGEN-USASP2012023774

PATIENT
  Age: 53 Year
  Sex: Female

DRUGS (7)
  1. ENBREL [Suspect]
     Indication: RHEUMATOID ARTHRITIS
     Dosage: 50 mg, qwk
     Route: 058
  2. SIMPONI [Concomitant]
     Dosage: 50 mg, UNK
     Route: 058
  3. FOLIC ACID [Concomitant]
     Dosage: UNK
     Route: 048
  4. METHOTREXATE [Concomitant]
     Dosage: 2.5 mg, UNK
     Route: 048
  5. MULTI TABS [Concomitant]
     Dosage: UNK
     Route: 048
  6. VITAMIN D NOS [Concomitant]
     Dosage: UNK
     Route: 048
  7. ARMOUR THYROID [Concomitant]
     Dosage: 240 mg, UNK
     Route: 048

REACTIONS (1)
  - Drug ineffective [Unknown]
